FAERS Safety Report 6901835-3 (Version None)
Quarter: 2010Q3

REPORT INFORMATION
  Report Type: 
  Country: None (occurrence: None)
  Receive Date: 20100803
  Receipt Date: 20080312
  Transmission Date: 20110219
  Serious: No
  Sender: FDA-Public Use
  Company Number: US-PFIZER INC-2008024055

PATIENT
  Sex: Female

DRUGS (3)
  1. LYRICA [Suspect]
     Indication: FIBROMYALGIA
     Route: 048
     Dates: start: 20080308
  2. PROZAC [Concomitant]
     Route: 048
     Dates: start: 20070101
  3. WELLBUTRIN [Concomitant]
     Route: 048
     Dates: start: 20070101

REACTIONS (2)
  - SOMNOLENCE [None]
  - VISION BLURRED [None]
